FAERS Safety Report 16069579 (Version 1)
Quarter: 2019Q1

REPORT INFORMATION
  Report Type: Spontaneous
  Country: US (occurrence: US)
  Receive Date: 20190314
  Receipt Date: 20190314
  Transmission Date: 20190418
  Serious: No
  Sender: FDA-Public Use
  Company Number: US-JNJFOC-20190217348

PATIENT
  Age: 8 Month
  Sex: Female
  Weight: 8.62 kg

DRUGS (3)
  1. INFANTS TYLENOL [Suspect]
     Active Substance: ACETAMINOPHEN
     Indication: PYREXIA
     Route: 048
     Dates: start: 20190205
  2. INFANTS TYLENOL [Suspect]
     Active Substance: ACETAMINOPHEN
     Indication: NASOPHARYNGITIS
     Route: 048
     Dates: start: 20190205
  3. INFANTS TYLENOL [Suspect]
     Active Substance: ACETAMINOPHEN
     Indication: PAIN
     Route: 048
     Dates: start: 20190205

REACTIONS (1)
  - Drug effect incomplete [Unknown]
